FAERS Safety Report 8061945-7 (Version None)
Quarter: 2012Q1

REPORT INFORMATION
  Report Type: 
  Country: None (occurrence: None)
  Receive Date: 20120123
  Receipt Date: 20120111
  Transmission Date: 20120608
  Serious: Yes (Hospitalization)
  Sender: FDA-Public Use
  Company Number: US-BAYER-2010-002190

PATIENT
  Age: 24 Year
  Sex: Female

DRUGS (11)
  1. CYMBALTA [Concomitant]
     Indication: FIBROMYALGIA
     Dosage: 60 MG, HS
  2. TRIAMTERENE [Concomitant]
     Dosage: 37.5/25 MG DAILY AS NEEDED
     Route: 048
     Dates: start: 20090604
  3. YAZ [Suspect]
  4. TRAZODONE HCL [Concomitant]
     Dosage: 100 MG, HS
     Route: 048
  5. IBUPROFEN [Concomitant]
     Dosage: 800 MG, TID
     Route: 048
  6. CYCLOBENZAPRINE [Concomitant]
     Dosage: 10 MG, BID
  7. DARVOCET [Concomitant]
     Indication: FIBROMYALGIA
     Dosage: 100/650 MG THREE TIMES DAILY AS NEEDED
  8. DARVOCET [Concomitant]
     Indication: ARTHRITIS
  9. CLONAZEPAM [Concomitant]
     Dosage: 0.5 MG EVERY 12 HOURS AS NEEDED
     Route: 048
     Dates: start: 20090604
  10. GABAPENTIN [Concomitant]
     Dosage: 300 MG FOR 5 DAYS THEN 1 CAPSULE EVERY MORNING AND 2 EVERY EVENING
     Route: 048
     Dates: start: 20090608
  11. YAZ [Suspect]
     Indication: PREMENSTRUAL SYNDROME
     Dosage: UNK
     Dates: start: 20060101, end: 20090801

REACTIONS (2)
  - GALLBLADDER DISORDER [None]
  - CHOLECYSTITIS ACUTE [None]
